FAERS Safety Report 6773603-7 (Version None)
Quarter: 2010Q2

REPORT INFORMATION
  Report Type: 
  Country: None (occurrence: None)
  Receive Date: 20100614
  Receipt Date: 20100601
  Transmission Date: 20101027
  Serious: Yes (Hospitalization, Disabling, Other)
  Sender: FDA-Public Use
  Company Number: 2009AC000046

PATIENT
  Age: 37 Year
  Sex: Male

DRUGS (62)
  1. DIGOXIN [Suspect]
     Dosage: 0.06 MG; QD; PO
     Route: 048
     Dates: start: 20061101
  2. DIGOXIN [Suspect]
     Dosage: 0.125 MG; PO
     Route: 048
     Dates: start: 20061101
  3. DIGOXIN [Suspect]
     Dosage: 0.25 MG
     Dates: start: 19990701
  4. DIGOXIN [Suspect]
     Dosage: QD; PO
     Route: 048
     Dates: start: 19991201, end: 20070101
  5. WARFARIN [Concomitant]
  6. ATACAND [Concomitant]
  7. FERROUS SULFATE TAB [Concomitant]
  8. BISOPROLOL [Concomitant]
  9. ZINC [Concomitant]
  10. VITAMIN C [Concomitant]
  11. LASIX [Concomitant]
  12. INSPRA [Concomitant]
  13. AMIODARONE [Concomitant]
  14. PREVACID [Concomitant]
  15. TEMAZEPAM [Concomitant]
  16. AZMACORT [Concomitant]
  17. POTASSIUM [Concomitant]
  18. FLUTICASONE [Concomitant]
  19. METOCLOPRAMIDE [Concomitant]
  20. ZYRTEC [Concomitant]
  21. GENGRAF [Concomitant]
  22. CELLCEPT [Concomitant]
  23. ASPIRIN [Concomitant]
  24. CALTRATE [Concomitant]
  25. CARDIZEM [Concomitant]
  26. FLONASE [Concomitant]
  27. SYNTHROID [Concomitant]
  28. ALENDRONATE SODIUM [Concomitant]
  29. ZEBETA [Concomitant]
  30. METOLAZONE [Concomitant]
  31. COUMADIN [Concomitant]
  32. IRON SULFATETHIAMIN COMPOUND TAB [Concomitant]
  33. REGLAN [Concomitant]
  34. CANDESARTAN [Concomitant]
  35. PROVENTIL [Concomitant]
  36. NIZATIDINE [Concomitant]
  37. RU-TUSS [Concomitant]
  38. AZMACORT [Concomitant]
  39. AXID [Concomitant]
  40. FLONAS [Concomitant]
  41. ISPRA [Concomitant]
  42. METOLAZONE [Concomitant]
  43. REGIAN [Concomitant]
  44. ZEBETA [Concomitant]
  45. BISOPROLOL [Concomitant]
  46. ZINC [Concomitant]
  47. VITAMIN C [Concomitant]
  48. GUASFENESIN [Concomitant]
  49. DIGIBIND [Concomitant]
  50. VASOTEC [Concomitant]
  51. BETAPACE [Concomitant]
  52. ASTELIN [Concomitant]
  53. SINGULAIR [Concomitant]
  54. PULMICORT [Concomitant]
  55. LORTAB [Concomitant]
  56. VIAGRA [Concomitant]
  57. ACYCLOVIR [Concomitant]
  58. CELLCEPT [Concomitant]
  59. FOSAMAX [Concomitant]
  60. AZITHROMYCIN [Concomitant]
  61. DILTIAZEM [Concomitant]
  62. NYSTATIN [Concomitant]

REACTIONS (48)
  - ANHEDONIA [None]
  - ANXIETY [None]
  - ARRHYTHMIA [None]
  - ASTHENIA [None]
  - ASTHMA [None]
  - ATRIAL FIBRILLATION [None]
  - ATRIOVENTRICULAR BLOCK COMPLETE [None]
  - BACK PAIN [None]
  - BURSITIS [None]
  - CARDIAC FAILURE [None]
  - CARDIAC FAILURE CONGESTIVE [None]
  - CARDIOACTIVE DRUG LEVEL INCREASED [None]
  - CARDIOMYOPATHY [None]
  - COLON NEOPLASM [None]
  - CONDITION AGGRAVATED [None]
  - COUGH [None]
  - DEFORMITY [None]
  - DEVICE DISLOCATION [None]
  - DIZZINESS [None]
  - DRUG LEVEL INCREASED [None]
  - DYSPNOEA [None]
  - DYSSTASIA [None]
  - ECONOMIC PROBLEM [None]
  - EJECTION FRACTION DECREASED [None]
  - FAECAL INCONTINENCE [None]
  - FATIGUE [None]
  - FLUID OVERLOAD [None]
  - GASTROOESOPHAGEAL REFLUX DISEASE [None]
  - GENERAL PHYSICAL HEALTH DETERIORATION [None]
  - HEART TRANSPLANT [None]
  - HEART TRANSPLANT REJECTION [None]
  - HUNGER [None]
  - HYPOTHYROIDISM [None]
  - INGROWING NAIL [None]
  - INJURY [None]
  - INSOMNIA [None]
  - IRRITABILITY [None]
  - LOSS OF CONSCIOUSNESS [None]
  - MULTIPLE ALLERGIES [None]
  - MUSCULAR DYSTROPHY [None]
  - MUSCULAR WEAKNESS [None]
  - PAIN [None]
  - SHOCK [None]
  - SYNCOPE [None]
  - THERAPEUTIC AGENT TOXICITY [None]
  - THYROID DISORDER [None]
  - UNEVALUABLE EVENT [None]
  - VENTRICULAR TACHYCARDIA [None]
